FAERS Safety Report 4277173-7 (Version None)
Quarter: 2004Q1

REPORT INFORMATION
  Report Type: 
  Country: None (occurrence: None)
  Receive Date: 20040120
  Receipt Date: 19970929
  Transmission Date: 20041129
  Serious: No
  Sender: FDA-Public Use
  Company Number: 7168

PATIENT
  Age: 46 Year
  Sex: Male

DRUGS (4)
  1. METHOTREXATE [Suspect]
     Indication: RHEUMATOID ARTHRITIS
     Dosage: 5 MG WEEKLY; PO
     Route: 048
     Dates: start: 19960201, end: 19960731
  2. FOLIC ACID [Concomitant]
  3. KETOPROFEN [Concomitant]
  4. CIMETIDINE HCL [Concomitant]

REACTIONS (6)
  - AMNESIA [None]
  - ANXIETY [None]
  - CONFUSIONAL STATE [None]
  - DEPRESSION [None]
  - EUPHORIC MOOD [None]
  - HALLUCINATION [None]
